FAERS Safety Report 6558613-7 (Version None)
Quarter: 2010Q1

REPORT INFORMATION
  Report Type: 
  Country: None (occurrence: None)
  Receive Date: 20100128
  Receipt Date: 20100128
  Transmission Date: 20100710
  Serious: Yes (Death, Life-Threatening)
  Sender: FDA-Public Use
  Company Number: None

PATIENT
  Age: 67 Year
  Sex: Male
  Weight: 154.2 kg

DRUGS (2)
  1. ENOXAPARIN SODIUM [Suspect]
     Indication: INTERNATIONAL NORMALISED RATIO
     Dosage: 150 MG TWICE DAILY SQ
     Route: 058
     Dates: start: 20091230, end: 20100101
  2. WARFARIN SODIUM [Suspect]
     Indication: ATRIAL FIBRILLATION
     Dosage: VARIED DOSES DAILY PO
     Route: 048
     Dates: start: 20091231, end: 20100101

REACTIONS (7)
  - BLOOD PRESSURE DECREASED [None]
  - FALL [None]
  - HAEMATOMA [None]
  - HAEMORRHAGE [None]
  - HYPERHIDROSIS [None]
  - NAUSEA [None]
  - PRESYNCOPE [None]
